FAERS Safety Report 4896495-X (Version None)
Quarter: 2006Q1

REPORT INFORMATION
  Report Type: 
  Country: None (occurrence: None)
  Receive Date: 20060131
  Receipt Date: 20060126
  Transmission Date: 20060701
  Serious: Yes (Other)
  Sender: FDA-Public Use
  Company Number: US-GLAXOSMITHKLINE-A0591078A

PATIENT
  Age: 14 Year
  Sex: Male

DRUGS (4)
  1. ADVAIR DISKUS 100/50 [Suspect]
     Indication: ASTHMA
     Route: 055
  2. ZYRTEC-D 12 HOUR [Suspect]
     Indication: DRUG USE FOR UNKNOWN INDICATION
     Route: 065
  3. SINGULAIR [Suspect]
     Indication: DRUG USE FOR UNKNOWN INDICATION
  4. ALBUTEROL SULFATE AUTOHALER [Concomitant]

REACTIONS (8)
  - CARDIAC DISORDER [None]
  - COMMUNICATION DISORDER [None]
  - CONVULSION [None]
  - DYSPNOEA [None]
  - FATIGUE [None]
  - HEART RATE INCREASED [None]
  - PRESCRIBED OVERDOSE [None]
  - STARING [None]
